FAERS Safety Report 10770863 (Version 1)
Quarter: 2015Q1

REPORT INFORMATION
  Report Type: Spontaneous
  Country: US (occurrence: None)
  Receive Date: 20150206
  Receipt Date: 20150206
  Transmission Date: 20150721
  Serious: No
  Sender: FDA-Public Use
  Company Number: HYP201408-000051

PATIENT
  Age: 43 Year
  Sex: Female

DRUGS (3)
  1. VITAMIN D /00107901/ (ERGOCALCIFEROL) [Concomitant]
  2. SYNTHROID [Concomitant]
     Active Substance: LEVOTHYROXINE SODIUM
  3. RAVICTI [Suspect]
     Active Substance: GLYCEROL PHENYLBUTYRATE
     Indication: UREA CYCLE ENZYME DEFICIENCY
     Dates: start: 20140710, end: 20140722

REACTIONS (5)
  - Abdominal pain upper [None]
  - Hypoaesthesia [None]
  - Paraesthesia [None]
  - Burning sensation [None]
  - Throat irritation [None]

NARRATIVE: CASE EVENT DATE: 201407
